FAERS Safety Report 7668924-X (Version None)
Quarter: 2011Q3

REPORT INFORMATION
  Report Type: 
  Country: None (occurrence: None)
  Receive Date: 20110808
  Receipt Date: 20110719
  Transmission Date: 20111222
  Serious: Yes (Hospitalization)
  Sender: FDA-Public Use
  Company Number: US-GLAXOSMITHKLINE-A0878765A

PATIENT
  Age: 57 Year
  Sex: Male
  Weight: 92.7 kg

DRUGS (6)
  1. BUPROPION HCL [Concomitant]
  2. PRAVACHOL [Concomitant]
  3. INSULIN [Concomitant]
  4. AVANDAMET [Suspect]
     Indication: DIABETES MELLITUS
     Route: 048
     Dates: start: 20040406, end: 20070101
  5. AVANDIA [Suspect]
     Indication: DIABETES MELLITUS
     Route: 048
  6. LISINOPRIL [Concomitant]

REACTIONS (4)
  - CORONARY ARTERY DISEASE [None]
  - FLUID RETENTION [None]
  - FLUID OVERLOAD [None]
  - CARDIAC ARREST [None]
